FAERS Safety Report 20507022 (Version 9)
Quarter: 2022Q3

REPORT INFORMATION
  Report Type: Report from Study
  Country: CN (occurrence: CN)
  Receive Date: 20220223
  Receipt Date: 20220805
  Transmission Date: 20221027
  Serious: Yes (Hospitalization)
  Sender: FDA-Public Use
  Company Number: CN-KARYOPHARM-2022KPT000208

PATIENT
  Age: 72 Year
  Sex: Male
  Weight: 59 kg

DRUGS (22)
  1. SELINEXOR [Suspect]
     Active Substance: SELINEXOR
     Indication: Diffuse large B-cell lymphoma
     Dosage: 40 MG, ON DAYS 1 AND 8 OF A 21-DAY CYCLE
     Route: 048
     Dates: start: 20211214
  2. RITUXIMAB [Suspect]
     Active Substance: RITUXIMAB
     Indication: Diffuse large B-cell lymphoma
     Dosage: 375 MG/M2, ON DAY 1 OF A 21-DAY CYCLE
     Route: 042
     Dates: start: 20211214
  3. RITUXIMAB [Suspect]
     Active Substance: RITUXIMAB
     Dosage: UNK
  4. GEMCITABINE [Suspect]
     Active Substance: GEMCITABINE
     Indication: Diffuse large B-cell lymphoma
     Dosage: 1700 MG, ON DAYS 1 AND 8 OF A 21-DAY CYCLE
     Route: 042
     Dates: start: 20211214
  5. GEMCITABINE [Suspect]
     Active Substance: GEMCITABINE
     Dosage: 1300 MG, ON DAYS 1 AND 8 OF A 21-DAY CYCLE
     Route: 042
     Dates: start: 20220302
  6. DEXAMETHASONE [Suspect]
     Active Substance: DEXAMETHASONE
     Indication: Diffuse large B-cell lymphoma
     Dosage: 10 MG, ON DAYS 1-4 OF A 21-DAY CYCLE
     Route: 048
     Dates: start: 20211214
  7. CISPLATIN [Suspect]
     Active Substance: CISPLATIN
     Indication: Diffuse large B-cell lymphoma
     Dosage: 127.5 MG, ON DAY 1 OF A 21-DAY CYCLE
     Route: 042
     Dates: start: 20211214
  8. CISPLATIN [Suspect]
     Active Substance: CISPLATIN
     Dosage: 100 MG, ON DAY 1 OF A 21-DAY CYCLE
     Dates: start: 20220302
  9. ONDANSETRON [Concomitant]
     Active Substance: ONDANSETRON
     Indication: Vomiting
     Dosage: 8 MG, TID
     Route: 048
     Dates: start: 20211214, end: 20220206
  10. ONDANSETRON [Concomitant]
     Active Substance: ONDANSETRON
     Dosage: 8 MG, TID
     Dates: start: 20211214
  11. APREPITANT [Concomitant]
     Active Substance: APREPITANT
     Indication: Supportive care
     Dosage: 1 DOSAGE FORM, QD
     Route: 065
     Dates: start: 20211214
  12. GRANULOCYTE COLONY-STIMULATING FACTOR NOS [Concomitant]
     Active Substance: GRANULOCYTE COLONY-STIMULATING FACTOR NOS
     Indication: Supportive care
     Dosage: 320 UG, SINGLE
     Route: 065
     Dates: start: 20220205, end: 20220205
  13. GRANULOCYTE COLONY-STIMULATING FACTOR NOS [Concomitant]
     Active Substance: GRANULOCYTE COLONY-STIMULATING FACTOR NOS
     Dosage: 320 UG, SINGLE
     Dates: start: 20220205, end: 20220216
  14. SODIUM CHLORIDE [Concomitant]
     Active Substance: SODIUM CHLORIDE
     Indication: Supportive care
     Dosage: UNK
     Route: 042
     Dates: start: 20211214, end: 20220204
  15. PROMETHAZINE [Concomitant]
     Active Substance: PROMETHAZINE HYDROCHLORIDE
     Indication: Allergy prophylaxis
     Dosage: 12.5 MG, SINGLE
     Route: 065
     Dates: start: 20220128, end: 20220128
  16. GLYCERIN [Concomitant]
     Active Substance: GLYCERIN
     Indication: Constipation
     Dosage: 2 DOSAGE FORM, SINGLE
     Dates: start: 20220202, end: 20220202
  17. CEFUROXIME [Concomitant]
     Active Substance: CEFUROXIME
     Indication: Upper respiratory tract infection
     Dosage: 1 DOSAGE FORM, BID
     Route: 048
     Dates: start: 20220204, end: 20220205
  18. GUAIFENESIN [Concomitant]
     Active Substance: GUAIFENESIN
     Indication: Upper respiratory tract infection
     Dosage: 10 ML, TID
     Route: 048
     Dates: start: 20220204, end: 20220211
  19. CEFTRIAXONE [Concomitant]
     Active Substance: CEFTRIAXONE
     Indication: Upper respiratory tract infection
     Dosage: 2 G, QD
     Route: 042
     Dates: start: 20220206, end: 20220207
  20. ASCORBIC ACID [Concomitant]
     Active Substance: ASCORBIC ACID
     Indication: Dehydration
     Dosage: 2 G, QD
     Route: 042
     Dates: start: 20220206, end: 20220207
  21. AMINO ACIDS, SOURCE UNSPECIFIED [Concomitant]
     Active Substance: AMINO ACIDS, SOURCE UNSPECIFIED
     Indication: Nutritional supplementation
     Dosage: 250 ML, QD
     Route: 042
     Dates: start: 20220206, end: 20220207
  22. THROMBOPOIETIN [Concomitant]
     Active Substance: THROMBOPOIETIN
     Indication: Platelet count decreased
     Dosage: 15000 IU, QD
     Route: 065
     Dates: start: 20220206, end: 20220217

REACTIONS (1)
  - Pneumonia [Not Recovered/Not Resolved]

NARRATIVE: CASE EVENT DATE: 20220208
